FAERS Safety Report 24938207 (Version 3)
Quarter: 2025Q1

REPORT INFORMATION
  Report Type: Spontaneous
  Country: ZA (occurrence: ZA)
  Receive Date: 20250206
  Receipt Date: 20250320
  Transmission Date: 20250409
  Serious: Yes (Other)
  Sender: NOVARTIS
  Company Number: ZA-002147023-NVSC2025ZA017344

PATIENT
  Age: 52 Year
  Sex: Female

DRUGS (4)
  1. COSENTYX [Suspect]
     Active Substance: SECUKINUMAB
     Indication: Psoriatic arthropathy
     Dosage: 300 MG, QMO
     Route: 058
     Dates: start: 20210604
  2. COSENTYX [Suspect]
     Active Substance: SECUKINUMAB
     Indication: Dactylitis
  3. COSENTYX [Suspect]
     Active Substance: SECUKINUMAB
     Indication: Arthritis
  4. CYCLOSPORINE [Suspect]
     Active Substance: CYCLOSPORINE
     Indication: Product used for unknown indication
     Dosage: 50 MG, BID
     Route: 065
     Dates: start: 202011

REACTIONS (5)
  - Wound [Unknown]
  - Illness [Unknown]
  - Pneumonia bacterial [Unknown]
  - Incisional hernia [Unknown]
  - Off label use [Unknown]
